FAERS Safety Report 15584142 (Version 3)
Quarter: 2018Q4

REPORT INFORMATION
  Report Type: Report from Study
  Country: None (occurrence: GB)
  Receive Date: 20181105
  Receipt Date: 20181128
  Transmission Date: 20190205
  Serious: Yes (Hospitalization)
  Sender: FDA-Public Use
  Company Number: GB-ABBVIE-18S-167-2540735-00

PATIENT
  Sex: Female

DRUGS (2)
  1. DUODOPA [Suspect]
     Active Substance: CARBIDOPA\LEVODOPA
     Dosage: 100ML CASSETTES, DAILY
     Route: 050
     Dates: start: 20181108
  2. DUODOPA [Suspect]
     Active Substance: CARBIDOPA\LEVODOPA
     Indication: PARKINSON^S DISEASE
     Dosage: 100ML CASSETTES, DAILY
     Route: 050

REACTIONS (6)
  - Inappropriate schedule of product administration [Unknown]
  - Visual impairment [Unknown]
  - Device dislocation [Unknown]
  - Communication disorder [Unknown]
  - Device occlusion [Unknown]
  - Device kink [Unknown]

NARRATIVE: CASE EVENT DATE: 2018
